FAERS Safety Report 7316575-9 (Version None)
Quarter: 2011Q1

REPORT INFORMATION
  Report Type: 
  Country: None (occurrence: None)
  Receive Date: 20110226
  Receipt Date: 20100714
  Transmission Date: 20110831
  Serious: No
  Sender: FDA-Public Use
  Company Number: US-ALLERGAN-1009165US

PATIENT
  Age: 43 Year
  Sex: Female

DRUGS (2)
  1. BOTOX COSMETIC [Suspect]
     Dosage: 12 UNITS, UNK
     Dates: start: 20100702, end: 20100702
  2. BOTOX COSMETIC [Suspect]
     Indication: SKIN WRINKLING
     Dosage: 12 UNK, SINGLE
     Route: 030
     Dates: start: 20100501, end: 20100501

REACTIONS (2)
  - SKIN TIGHTNESS [None]
  - EYELID PTOSIS [None]
